FAERS Safety Report 4354172-8 (Version None)
Quarter: 2004Q2

REPORT INFORMATION
  Report Type: 
  Country: None (occurrence: None)
  Receive Date: 20040506
  Receipt Date: 20040428
  Transmission Date: 20050107
  Serious: Yes (Life-Threatening, Hospitalization)
  Sender: FDA-Public Use
  Company Number: PHEH2004US04817

PATIENT
  Age: 53 Year
  Sex: Female
  Weight: 102 kg

DRUGS (8)
  1. LAMISIL [Suspect]
     Indication: NAIL TINEA
     Dosage: 250 MG, QD
     Route: 048
     Dates: start: 20020201, end: 20020301
  2. LAMISIL [Suspect]
     Dosage: 250 MG, QD
     Route: 048
     Dates: start: 20020601, end: 20020901
  3. LAMISIL [Suspect]
     Dosage: 250 MG, QD
     Route: 048
     Dates: start: 20040301
  4. CLONIDINE HCL [Concomitant]
     Indication: HYPERTENSION
     Route: 048
  5. LASIX [Concomitant]
     Indication: HYPERTENSION
     Route: 048
  6. AMARYL [Concomitant]
     Indication: DIABETES MELLITUS NON-INSULIN-DEPENDENT
     Route: 048
  7. ATACAND [Concomitant]
     Indication: HYPERTENSION
     Route: 048
  8. ALLEGRA [Concomitant]
     Indication: RHINITIS SEASONAL
     Dosage: 180 MG, Q48H
     Route: 048

REACTIONS (5)
  - COLLAPSE OF LUNG [None]
  - DIAPHRAGMATIC HERNIA [None]
  - DRUG INEFFECTIVE [None]
  - NAIL TINEA [None]
  - RESPIRATORY ARREST [None]
